FAERS Safety Report 6988353-1 (Version None)
Quarter: 2010Q3

REPORT INFORMATION
  Report Type: 
  Country: None (occurrence: None)
  Receive Date: 20100830
  Receipt Date: 20100511
  Transmission Date: 20110219
  Serious: No
  Sender: FDA-Public Use
  Company Number: 2010038841

PATIENT
  Age: 55 Year
  Sex: Female
  Weight: 75.7 kg

DRUGS (4)
  1. TOVIAZ [Suspect]
     Indication: URINARY INCONTINENCE
     Dosage: 4 MG, 1X/DAY
  2. LISINOPRIL [Concomitant]
  3. DEPAKOTE [Concomitant]
  4. METFORMIN HCL [Concomitant]

REACTIONS (2)
  - MALAISE [None]
  - NAUSEA [None]
